FAERS Safety Report 5738260-7 (Version None)
Quarter: 2008Q2

REPORT INFORMATION
  Report Type: 
  Country: None (occurrence: None)
  Receive Date: 20080514
  Receipt Date: 20080506
  Transmission Date: 20081010
  Serious: Yes (Hospitalization)
  Sender: FDA-Public Use
  Company Number: FR-PFIZER INC-2008039354

PATIENT
  Sex: Male

DRUGS (11)
  1. ZOLOFT [Suspect]
     Route: 048
     Dates: start: 20070920, end: 20071009
  2. SPIRIVA [Suspect]
     Dosage: DAILY DOSE:36MCG-TEXT:DAILY
     Route: 048
     Dates: start: 20071008, end: 20071009
  3. ROHYPNOL [Suspect]
     Route: 048
     Dates: start: 20071003, end: 20071009
  4. PREVISCAN [Suspect]
     Route: 048
  5. HEXAQUINE [Concomitant]
     Route: 048
  6. LYSANXIA [Concomitant]
     Route: 048
  7. DOMPERIDONE [Concomitant]
     Dosage: DAILY DOSE:10MG-TEXT:DAILY
     Route: 048
  8. CARVEDILOL [Concomitant]
     Dates: start: 20010201, end: 20071009
  9. PERINDOPRIL ERBUMINE [Concomitant]
     Dates: start: 20041001, end: 20071009
  10. LESCOL [Concomitant]
     Dates: start: 20030801, end: 20071009
  11. ASPIRIN [Concomitant]

REACTIONS (3)
  - HAEMATOMA [None]
  - INTERNATIONAL NORMALISED RATIO INCREASED [None]
  - OVERDOSE [None]
